FAERS Safety Report 6237055-8 (Version None)
Quarter: 2009Q2

REPORT INFORMATION
  Report Type: 
  Country: None (occurrence: None)
  Receive Date: 20090617
  Receipt Date: 20080117
  Transmission Date: 20091009
  Serious: No
  Sender: FDA-Public Use
  Company Number: 272691

PATIENT
  Sex: Female

DRUGS (3)
  1. LEVEMIR [Suspect]
     Indication: DIABETES MELLITUS
     Dosage: SUBCUTANEOUS
     Route: 058
  2. ACE INHIBITOR NOS [Concomitant]
  3. STATIN (NYSTATIN) TABLET [Concomitant]

REACTIONS (1)
  - HYPERSENSITIVITY [None]
